FAERS Safety Report 24763292 (Version 1)
Quarter: 2024Q4

REPORT INFORMATION
  Report Type: Report from Study
  Country: US (occurrence: US)
  Receive Date: 20241222
  Receipt Date: 20241222
  Transmission Date: 20250114
  Serious: Yes (Death, Other)
  Sender: BRISTOL-MYERS SQUIBB COMPANY
  Company Number: US-CELGENE-USA-2014114145

PATIENT

DRUGS (4)
  1. VIDAZA [Suspect]
     Active Substance: AZACITIDINE
     Indication: Myelodysplastic syndrome
     Dosage: 75 MILLIGRAM/SQ. METER, SC OR IV
  2. RIGOSERTIB [Suspect]
     Active Substance: RIGOSERTIB
     Indication: Myelodysplastic syndrome
     Dosage: 560MG
     Route: 048
  3. RIGOSERTIB [Suspect]
     Active Substance: RIGOSERTIB
     Dosage: 280MG
     Route: 048
  4. RIGOSERTIB [Suspect]
     Active Substance: RIGOSERTIB
     Dosage: FREQUENCY TEXT: BID?560MG QAM AND 280MG QPM
     Route: 048

REACTIONS (21)
  - Myelodysplastic syndrome [Fatal]
  - Pneumonia [Fatal]
  - Blood creatinine increased [Unknown]
  - Back pain [Unknown]
  - Dysuria [Unknown]
  - Oedema peripheral [Unknown]
  - Decreased appetite [Unknown]
  - Pneumonia fungal [Unknown]
  - Constipation [Unknown]
  - Diarrhoea [Unknown]
  - Nausea [Unknown]
  - Hypotension [Unknown]
  - Fatigue [Unknown]
  - Pyrexia [Unknown]
  - Thrombocytopenia [Unknown]
  - Neutropenia [Unknown]
  - Haematuria [Unknown]
  - Dizziness [Unknown]
  - Dyspnoea [Unknown]
  - Cough [Unknown]
  - Therapy non-responder [Unknown]
